FAERS Safety Report 7217768-1 (Version None)
Quarter: 2011Q1

REPORT INFORMATION
  Report Type: 
  Country: None (occurrence: None)
  Receive Date: 20110110
  Receipt Date: 20101227
  Transmission Date: 20110831
  Serious: Yes (Other)
  Sender: FDA-Public Use
  Company Number: PHHY2010SI82418

PATIENT
  Sex: Male
  Weight: 75 kg

DRUGS (7)
  1. ZALDIAR [Concomitant]
  2. TRIPTORELIN [Concomitant]
  3. ZOLEDRONATE [Suspect]
     Indication: BONE DISORDER
     Dosage: 4MG/5ML/28DAYS
     Route: 042
     Dates: start: 20080924
  4. NAKLOFEN [Concomitant]
  5. OXYCONTIN [Concomitant]
  6. CASODEX [Concomitant]
  7. PERINDOPRIL [Concomitant]

REACTIONS (1)
  - BLOOD ALKALINE PHOSPHATASE INCREASED [None]
